FAERS Safety Report 4968434-4 (Version None)
Quarter: 2006Q2

REPORT INFORMATION
  Report Type: 
  Country: None (occurrence: None)
  Receive Date: 20060410
  Receipt Date: 20051115
  Transmission Date: 20061013
  Serious: Yes (Hospitalization, Disabling)
  Sender: FDA-Public Use
  Company Number: CA-MERCK-0511CAN00095

PATIENT
  Age: 68 Year
  Sex: Female
  Weight: 86 kg

DRUGS (30)
  1. VIOXX [Suspect]
     Indication: OSTEOARTHRITIS
     Route: 048
     Dates: start: 20010101, end: 20030601
  2. TERBINAFINE [Concomitant]
     Route: 065
  3. FLUCONAZOLE [Concomitant]
     Route: 065
  4. ESTROGENS, CONJUGATED [Concomitant]
     Route: 065
  5. PANTOPRAZOLE SODIUM [Concomitant]
     Indication: DYSPEPSIA
     Route: 065
  6. PANTOPRAZOLE SODIUM [Concomitant]
     Indication: GASTROOESOPHAGEAL REFLUX DISEASE
     Route: 065
  7. METHYLPREDNISOLONE ACETATE [Concomitant]
     Route: 065
     Dates: start: 20030303
  8. METHYLPREDNISOLONE ACETATE [Concomitant]
     Route: 065
     Dates: start: 20030428
  9. METHYLPREDNISOLONE ACETATE [Concomitant]
     Route: 065
     Dates: start: 20031021
  10. MOMETASONE FUROATE [Concomitant]
     Route: 065
  11. CLOTRIMAZOLE [Concomitant]
     Route: 065
  12. BECLOMETHASONE DIPROPIONATE [Concomitant]
     Route: 065
  13. FLUCONAZOLE [Concomitant]
     Route: 065
  14. CELECOXIB [Concomitant]
     Indication: ARTHRITIS
     Route: 065
     Dates: start: 20000901
  15. CELECOXIB [Concomitant]
     Route: 065
     Dates: start: 20001001
  16. CELECOXIB [Concomitant]
     Route: 065
     Dates: start: 20001101
  17. CELECOXIB [Concomitant]
     Route: 065
     Dates: start: 20001201
  18. CELECOXIB [Concomitant]
     Route: 065
     Dates: start: 20010101
  19. CELECOXIB [Concomitant]
     Route: 065
     Dates: start: 20010301, end: 20011101
  20. CELECOXIB [Concomitant]
     Route: 065
     Dates: start: 20041001
  21. CELECOXIB [Concomitant]
     Route: 065
     Dates: start: 20041101
  22. CELECOXIB [Concomitant]
     Route: 065
     Dates: start: 20041201
  23. ASPIRIN [Concomitant]
     Route: 065
     Dates: start: 20030101
  24. ACETAMINOPHEN [Concomitant]
     Route: 065
  25. GLUCOSAMINE [Concomitant]
     Indication: ARTHRITIS
     Route: 065
     Dates: start: 20000101
  26. DICLOFENAC SODIUM AND MISOPROSTOL [Concomitant]
     Route: 065
     Dates: start: 20000201
  27. ACETAMINOPHEN AND CODEINE PHOSPHATE [Concomitant]
     Route: 065
     Dates: start: 20030601
  28. ACETAMINOPHEN AND OXYCODONE HYDROCHLORIDE [Concomitant]
     Route: 065
     Dates: start: 20030701
  29. ACETAMINOPHEN AND OXYCODONE HYDROCHLORIDE [Concomitant]
     Route: 065
     Dates: start: 20040201
  30. RABEPRAZOLE SODIUM [Concomitant]
     Indication: HIATUS HERNIA
     Route: 065

REACTIONS (6)
  - ARTHROPATHY [None]
  - BLOOD CHOLESTEROL INCREASED [None]
  - CARDIOVASCULAR DISORDER [None]
  - DEPRESSION [None]
  - HYPERTENSION [None]
  - MYOCARDIAL INFARCTION [None]
